FAERS Safety Report 20774624 (Version 1)
Quarter: 2022Q2

REPORT INFORMATION
  Report Type: Spontaneous
  Country: US (occurrence: US)
  Receive Date: 20220502
  Receipt Date: 20220502
  Transmission Date: 20220721
  Serious: No
  Sender: FDA-Public Use
  Company Number: US-ABBVIE-21K-163-4209743-00

PATIENT
  Sex: Female

DRUGS (1)
  1. CREON [Suspect]
     Active Substance: PANCRELIPASE AMYLASE\PANCRELIPASE LIPASE\PANCRELIPASE PROTEASE
     Indication: Product used for unknown indication
     Dosage: DURATION: 2 AND A HALF MONTHS
     Route: 048

REACTIONS (4)
  - Burning sensation [Unknown]
  - Abdominal discomfort [Unknown]
  - Gastrointestinal tract irritation [Unknown]
  - Gastrointestinal pain [Unknown]
